FAERS Safety Report 16987322 (Version 1)
Quarter: 2019Q4

REPORT INFORMATION
  Report Type: Report from Study
  Country: US (occurrence: US)
  Receive Date: 20191102
  Receipt Date: 20191102
  Transmission Date: 20200122
  Serious: Yes (Hospitalization, Other)
  Sender: FDA-Public Use
  Company Number: NVSC2019US020948

PATIENT
  Age: 4 Year
  Sex: Female

DRUGS (1)
  1. ILARIS [Suspect]
     Active Substance: CANAKINUMAB
     Indication: PRODUCT USED FOR UNKNOWN INDICATION
     Dosage: 35 MG, EVERY 8 WEEKS
     Route: 058
     Dates: start: 20190912

REACTIONS (3)
  - Gastroenteritis [Unknown]
  - Mental status changes [Unknown]
  - Acute disseminated encephalomyelitis [Recovered/Resolved]

NARRATIVE: CASE EVENT DATE: 20190921
